FAERS Safety Report 20661837 (Version 1)
Quarter: 2022Q2

REPORT INFORMATION
  Report Type: Spontaneous
  Country: US (occurrence: None)
  Receive Date: 20220401
  Receipt Date: 20220401
  Transmission Date: 20220721
  Serious: Yes (Other)
  Sender: FDA-Public Use
  Company Number: 2022A129137

PATIENT
  Age: 72 Year
  Sex: Female
  Weight: 27.2 kg

DRUGS (3)
  1. FASLODEX [Suspect]
     Active Substance: FULVESTRANT
     Indication: Breast cancer female
     Route: 030
     Dates: start: 201912, end: 202001
  2. PREDNISONE [Concomitant]
     Active Substance: PREDNISONE
     Route: 065
  3. PLAQUIENIL [Concomitant]
     Route: 065

REACTIONS (5)
  - Paralysis [Unknown]
  - Fall [Unknown]
  - Nerve injury [Unknown]
  - Adrenocortical insufficiency acute [Recovered/Resolved]
  - Wrong technique in product usage process [Unknown]

NARRATIVE: CASE EVENT DATE: 20200101
